FAERS Safety Report 20817344 (Version 1)
Quarter: 2022Q2

REPORT INFORMATION
  Report Type: Spontaneous
  Country: CN (occurrence: CN)
  Receive Date: 20220512
  Receipt Date: 20220512
  Transmission Date: 20220720
  Serious: Yes (Other)
  Sender: FDA-Public Use
  Company Number: CN-SA-SAC20220510000433

PATIENT
  Age: 66 Year
  Sex: Male

DRUGS (4)
  1. CAPECITABINE [Suspect]
     Active Substance: CAPECITABINE
     Indication: Chemotherapy
     Dosage: 1.5 G, QM
     Route: 048
     Dates: start: 20220210, end: 20220213
  2. CAPECITABINE [Suspect]
     Active Substance: CAPECITABINE
     Dosage: 2 G, QM
     Dates: end: 20220210
  3. BEVACIZUMAB [Suspect]
     Active Substance: BEVACIZUMAB
     Indication: Chemotherapy
     Dosage: 500 MG
     Route: 041
     Dates: start: 20220210, end: 20220210
  4. OXALIPLATIN [Suspect]
     Active Substance: OXALIPLATIN
     Indication: Chemotherapy
     Dosage: 230 MG
     Route: 041
     Dates: start: 20220210, end: 20220210

REACTIONS (3)
  - Abdominal distension [Not Recovered/Not Resolved]
  - Diarrhoea [Not Recovered/Not Resolved]
  - Abdominal pain [Not Recovered/Not Resolved]

NARRATIVE: CASE EVENT DATE: 20220211
